FAERS Safety Report 16118394 (Version 2)
Quarter: 2019Q2

REPORT INFORMATION
  Report Type: Report from Study
  Country: US (occurrence: US)
  Receive Date: 20190326
  Receipt Date: 20190627
  Transmission Date: 20190711
  Serious: No
  Sender: FDA-Public Use
  Company Number: US-SA-2019SA081785

PATIENT
  Age: 69 Year
  Sex: Female
  Weight: 62 kg

DRUGS (15)
  1. COQ10 [CONJUGATED LINOLEIC ACID;LINUM USITATISSIMUM SEED OIL;UBIDECARE [Concomitant]
  2. PANTOPRAZOLE SODIUM. [Concomitant]
     Active Substance: PANTOPRAZOLE SODIUM
  3. ATORVASTATIN CALCIUM. [Concomitant]
     Active Substance: ATORVASTATIN CALCIUM
  4. AZITHROMYCIN ANHYDROUS. [Concomitant]
     Active Substance: AZITHROMYCIN ANHYDROUS
  5. NICOTINIC ACID [Suspect]
     Active Substance: NIACIN
  6. FISH OIL [Concomitant]
     Active Substance: FISH OIL
  7. TOPROL XL [Concomitant]
     Active Substance: METOPROLOL SUCCINATE
  8. ISOSORBIDE MONONITRATE. [Concomitant]
     Active Substance: ISOSORBIDE MONONITRATE
  9. ASTAXANTHIN [Concomitant]
     Active Substance: ASTAXANTHIN
  10. CLOPIDOGREL [Concomitant]
     Active Substance: CLOPIDOGREL BISULFATE
  11. LUTEINA [PROGESTERONE] [Concomitant]
  12. VITAMIN D3 [Concomitant]
     Active Substance: CHOLECALCIFEROL
  13. EZETIMIBE. [Concomitant]
     Active Substance: EZETIMIBE
  14. WELCHOL [Concomitant]
     Active Substance: COLESEVELAM HYDROCHLORIDE
  15. ALIROCUMAB [Suspect]
     Active Substance: ALIROCUMAB
     Indication: TYPE IIA HYPERLIPIDAEMIA
     Dosage: 150 MG, QOW
     Route: 058
     Dates: start: 20181216

REACTIONS (4)
  - Blood cholesterol increased [Unknown]
  - Generalised erythema [Recovered/Resolved]
  - Burning sensation [Recovered/Resolved]
  - Flushing [Recovered/Resolved]

NARRATIVE: CASE EVENT DATE: 20190319
